FAERS Safety Report 11065764 (Version 1)
Quarter: 2015Q2

REPORT INFORMATION
  Report Type: Spontaneous
  Country: US (occurrence: None)
  Receive Date: 20150423
  Receipt Date: 20150423
  Transmission Date: 20150821
  Serious: Yes (Death)
  Sender: FDA-Public Use
  Company Number: 2833280

PATIENT
  Age: 50 Year
  Sex: 0

DRUGS (4)
  1. CYTARABINE. [Suspect]
     Active Substance: CYTARABINE
     Indication: PROPHYLAXIS
     Route: 037
     Dates: start: 201305, end: 201307
  2. METHOTREXATE [Suspect]
     Active Substance: METHOTREXATE
     Indication: PROPHYLAXIS
     Route: 037
     Dates: start: 201305, end: 201307
  3. METHOTREXATE [Suspect]
     Active Substance: METHOTREXATE
     Route: 037
     Dates: start: 201305, end: 201307
  4. CYTARABINE. [Suspect]
     Active Substance: CYTARABINE
     Indication: DRUG THERAPY
     Route: 037
     Dates: start: 201305, end: 201307

REACTIONS (1)
  - Myelopathy [None]
